FAERS Safety Report 10395956 (Version 2)
Quarter: 2014Q3

REPORT INFORMATION
  Report Type: Spontaneous
  Country: US (occurrence: None)
  Receive Date: 20130815
  Receipt Date: 20140829
  Transmission Date: 20150326
  Serious: Yes (Hospitalization, Other)
  Sender: FDA-Public Use
  Company Number: ADR-2012-02247

PATIENT
  Age: 47 Year
  Sex: Male

DRUGS (16)
  1. DICYCLOMINE HYDROCHLORIDE. [Suspect]
     Active Substance: DICYCLOMINE HYDROCHLORIDE
     Dosage: 1 TABLET BEFORE MEALS AT BEDTIME
  2. MIRALAX [Suspect]
     Active Substance: POLYETHYLENE GLYCOL 3350
     Dosage: 1 CAPSULE EVERY OTHER DAY
  3. COLACE [Suspect]
     Active Substance: DOCUSATE SODIUM
     Dosage: 100MG 2 CAPSULES AT BEDTIME
  4. KLONOPIN [Suspect]
     Active Substance: CLONAZEPAM
  5. DEPAKOTE [Suspect]
     Active Substance: DIVALPROEX SODIUM
     Dosage: 500MG, 3 TABLETS ONCE A DAY
  6. NASONEX [Suspect]
     Active Substance: MOMETASONE FUROATE
     Dosage: 2 SPRAYS IN EACH NOSTRIL DAILY
  7. CRANBERRY CONCENTRATE [Suspect]
     Active Substance: CRANBERRY CONCENTRATE
     Dosage: 475MG, 1 CAPSULE TWICE DAILY
  8. BENZONATATE. [Suspect]
     Active Substance: BENZONATATE
     Dosage: 100MG, 1 CAPSULE 3 TIMES PER DAY
  9. SENOKOT [Suspect]
     Active Substance: SENNOSIDES
     Dosage: 2 TABLETS AT BEDTIME AS NEEDED FOR CONSTIPATION
  10. ZOCOR [Suspect]
     Active Substance: SIMVASTATIN
  11. PREVACID [Suspect]
     Active Substance: LANSOPRAZOLE
  12. LORATADINE. [Suspect]
     Active Substance: LORATADINE
  13. TAMSULOSIN HYDROCHLORIDE. [Suspect]
     Active Substance: TAMSULOSIN HYDROCHLORIDE
  14. BUDESONIDE NEBULIZER [Suspect]
     Active Substance: BUDESONIDE
     Dosage: NEBULIZER TWICE PER DAY
  15. CARAFATE [Suspect]
     Active Substance: SUCRALFATE
     Dosage: 100MG/ML 2 TABLESPOONS 4 TIMES PER DAY EFORE MEALS AND AT BEDTIME
  16. LIORESAL [Suspect]
     Active Substance: BACLOFEN
     Indication: MUSCLE SPASTICITY

REACTIONS (11)
  - Aphasia [None]
  - Muscle spasticity [None]
  - Unresponsive to stimuli [None]
  - Snoring [None]
  - Hypersomnia [None]
  - Coma [None]
  - Stupor [None]
  - Somnolence [None]
  - Hypotonia [None]
  - Depressed level of consciousness [None]
  - Fatigue [None]

NARRATIVE: CASE EVENT DATE: 20121210
